FAERS Safety Report 24391944 (Version 1)
Quarter: 2024Q4

REPORT INFORMATION
  Report Type: Spontaneous
  Country: US (occurrence: US)
  Receive Date: 20241003
  Receipt Date: 20241003
  Transmission Date: 20250114
  Serious: No
  Sender: PFIZER
  Company Number: US-PFIZER INC-202400266828

PATIENT
  Age: 36 Year
  Sex: Male
  Weight: 69 kg

DRUGS (3)
  1. OXBRYTA [Suspect]
     Active Substance: VOXELOTOR
     Indication: Sickle cell anaemia
     Dosage: 1500 MG
     Route: 048
     Dates: start: 2020
  2. OXBRYTA [Suspect]
     Active Substance: VOXELOTOR
     Dosage: 1000 MG, DAILY
     Route: 048
  3. HYDREA [Concomitant]
     Active Substance: HYDROXYUREA
     Dosage: 1500 MG

REACTIONS (4)
  - Vomiting [Unknown]
  - Diarrhoea [Unknown]
  - Product dose omission in error [Unknown]
  - Off label use [Unknown]
